FAERS Safety Report 4480187-5 (Version None)
Quarter: 2004Q4

REPORT INFORMATION
  Report Type: 
  Country: None (occurrence: None)
  Receive Date: 20041020
  Receipt Date: 20041014
  Transmission Date: 20050328
  Serious: Yes (Hospitalization)
  Sender: FDA-Public Use
  Company Number: CA-MERCK-0410CAN00287

PATIENT
  Age: 76 Year
  Sex: Female

DRUGS (11)
  1. VIOXX [Suspect]
     Indication: EXOSTOSIS
     Route: 048
  2. VIOXX [Suspect]
     Route: 048
     Dates: start: 20040501, end: 20040807
  3. HYZAAR [Concomitant]
     Route: 048
  4. [THERAPY UNSPECIFIED] [Concomitant]
     Route: 065
  5. OXYBUTYNIN CHLORIDE [Concomitant]
     Route: 065
  6. [THERAPY UNSPECIFIED] [Concomitant]
     Route: 065
  7. DILTIAZEM HYDROCHLORIDE [Concomitant]
     Route: 065
  8. OMEPRAZOLE MAGNESIUM [Concomitant]
     Route: 065
  9. MIRTAZAPINE [Concomitant]
     Route: 065
  10. [THERAPY UNSPECIFIED] [Concomitant]
     Route: 065
  11. ASCORBIC ACID [Concomitant]
     Route: 065

REACTIONS (3)
  - BLOOD PRESSURE INCREASED [None]
  - CARDIAC DISORDER [None]
  - REFUSAL OF EXAMINATION [None]
